FAERS Safety Report 10078843 (Version 1)
Quarter: 2014Q2

REPORT INFORMATION
  Report Type: Spontaneous
  Country: US (occurrence: US)
  Receive Date: 20140415
  Receipt Date: 20140415
  Transmission Date: 20141212
  Serious: No
  Sender: FDA-Public Use
  Company Number: US-009507513-1404USA006312

PATIENT
  Age: 21 Year
  Sex: Female
  Weight: 78.5 kg

DRUGS (1)
  1. NEXPLANON [Suspect]
     Indication: CONTRACEPTION
     Dosage: 3 YEAR IMPLANT IN LEFT ARM
     Route: 059
     Dates: start: 20130424

REACTIONS (9)
  - Menstrual disorder [Unknown]
  - Menorrhagia [Unknown]
  - Menorrhagia [Unknown]
  - Mood swings [Unknown]
  - Depression [Unknown]
  - Chest pain [Unknown]
  - Dyspnoea [Unknown]
  - Lymph node pain [Unknown]
  - Lymphadenopathy [Unknown]
